FAERS Safety Report 23221469 (Version 4)
Quarter: 2025Q2

REPORT INFORMATION
  Report Type: Report from Study
  Country: US (occurrence: US)
  Receive Date: 20231123
  Receipt Date: 20250609
  Transmission Date: 20250717
  Serious: Yes (Other)
  Sender: TAKEDA
  Company Number: US-TAKEDA-2023TUS113505

PATIENT
  Age: 59 Year
  Sex: Male

DRUGS (3)
  1. ADVATE [Suspect]
     Active Substance: ANTIHEMOPHILIC FACTOR, HUMAN RECOMBINANT
     Indication: Product used for unknown indication
  2. ADVATE [Suspect]
     Active Substance: ANTIHEMOPHILIC FACTOR, HUMAN RECOMBINANT
  3. ADVATE [Suspect]
     Active Substance: ANTIHEMOPHILIC FACTOR, HUMAN RECOMBINANT

REACTIONS (9)
  - Haemorrhage [Recovered/Resolved]
  - Spontaneous haemorrhage [Recovered/Resolved]
  - Fall [Unknown]
  - Joint injury [Unknown]
  - Head injury [Unknown]
  - COVID-19 [Recovering/Resolving]
  - Pain [Not Recovered/Not Resolved]
  - Spondylitis [Unknown]
  - Arthralgia [Recovered/Resolved]

NARRATIVE: CASE EVENT DATE: 20210706
